FAERS Safety Report 19204106 (Version 3)
Quarter: 2021Q3

REPORT INFORMATION
  Report Type: Report from Study
  Country: US (occurrence: US)
  Receive Date: 20210503
  Receipt Date: 20210923
  Transmission Date: 20211014
  Serious: No
  Sender: FDA-Public Use
  Company Number: US-ACADIA PHARMACEUTICALS INC.-ACA-2021-PIM-001349

PATIENT
  Age: 79 Year
  Sex: Female

DRUGS (12)
  1. ALENDRONATE [Concomitant]
     Active Substance: ALENDRONATE SODIUM
  2. NUPLAZID [Suspect]
     Active Substance: PIMAVANSERIN TARTRATE
     Indication: PARKINSON^S DISEASE
     Dosage: 34 MILLIGRAM, QD
     Route: 048
     Dates: start: 20210409
  3. CENTRUM BALANCE [Concomitant]
  4. MELATONIN [Concomitant]
     Active Substance: MELATONIN
  5. IPRATROPIUM [Concomitant]
     Active Substance: IPRATROPIUM
  6. MYRBETRIQ [Concomitant]
     Active Substance: MIRABEGRON
  7. SINEMET [Concomitant]
     Active Substance: CARBIDOPA\LEVODOPA
  8. NUPLAZID [Suspect]
     Active Substance: PIMAVANSERIN TARTRATE
     Indication: PARKINSON^S DISEASE
     Dosage: UNK
     Route: 065
  9. FLUDROCORTISON [Concomitant]
     Active Substance: FLUDROCORTISONE
  10. SEROQUEL [Concomitant]
     Active Substance: QUETIAPINE FUMARATE
  11. MEMANTINE. [Concomitant]
     Active Substance: MEMANTINE
  12. RIVASTIGMINE. [Concomitant]
     Active Substance: RIVASTIGMINE

REACTIONS (5)
  - Hallucination [Unknown]
  - Lacrimation increased [Not Recovered/Not Resolved]
  - Hallucination, visual [Not Recovered/Not Resolved]
  - Rhinorrhoea [Not Recovered/Not Resolved]
  - Drug ineffective [Not Recovered/Not Resolved]

NARRATIVE: CASE EVENT DATE: 20210325
